FAERS Safety Report 4762023-2 (Version None)
Quarter: 2005Q3

REPORT INFORMATION
  Report Type: 
  Country: None (occurrence: None)
  Receive Date: 20050831
  Receipt Date: 20050603
  Transmission Date: 20060218
  Serious: No
  Sender: FDA-Public Use
  Company Number: PHEH2005US05710

PATIENT
  Age: 97 Year
  Sex: Female
  Weight: 48.0813 kg

DRUGS (1)
  1. ENABLEX [Suspect]
     Indication: HYPERTONIC BLADDER
     Dosage: 7.5 MG QD
     Dates: start: 20050411, end: 20050511

REACTIONS (3)
  - FATIGUE [None]
  - LETHARGY [None]
  - SOMNOLENCE [None]
